FAERS Safety Report 19712884 (Version 1)
Quarter: 2021Q3

REPORT INFORMATION
  Report Type: Spontaneous
  Country: US (occurrence: US)
  Receive Date: 20210816
  Receipt Date: 20210816
  Transmission Date: 20211014
  Serious: Yes (Other)
  Sender: FDA-Public Use
  Company Number: US-009507513-2108USA002749

PATIENT
  Sex: Female

DRUGS (1)
  1. KEYTRUDA [Suspect]
     Active Substance: PEMBROLIZUMAB
     Indication: LUNG NEOPLASM MALIGNANT
     Dosage: 200 MG/ EVERY THREE WEEKS
     Route: 042

REACTIONS (4)
  - Human chorionic gonadotropin abnormal [Unknown]
  - Brain neoplasm [Unknown]
  - Multiple sclerosis [Unknown]
  - Cervix carcinoma stage I [Unknown]

NARRATIVE: CASE EVENT DATE: 202003
